FAERS Safety Report 8574142 (Version 4)
Quarter: 2012Q4

REPORT INFORMATION
  Report Type: 
  Country: US (occurrence: US)
  Receive Date: 20120522
  Receipt Date: 20121212
  Transmission Date: 20130627
  Serious: Yes (Hospitalization)
  Sender: FDA-Public Use
  Company Number: US-ASTRAZENECA-2012SE30723

PATIENT
  Age: 64 Year
  Sex: Female
  Weight: 67.1 kg

DRUGS (11)
  1. ATACAND [Suspect]
     Indication: HYPERTENSION
     Route: 048
  2. ATACAND [Suspect]
     Indication: HYPERTENSION
     Route: 048
  3. ATACAND [Suspect]
     Indication: HYPERTENSION
     Route: 048
  4. ATACAND [Suspect]
     Indication: HYPERTENSION
     Route: 048
  5. TOPROL XL [Suspect]
     Indication: HYPERTENSION
     Route: 048
  6. TOPROL XL [Suspect]
     Indication: HYPERTENSION
     Route: 048
  7. CLONIDINE [Concomitant]
  8. REGLAN [Concomitant]
  9. FAMOTIDINE [Concomitant]
  10. CARDIZEM CD [Concomitant]
  11. HCTZ [Concomitant]

REACTIONS (18)
  - Blood pressure fluctuation [Recovering/Resolving]
  - Chest pain [Recovered/Resolved]
  - Hypertension [Unknown]
  - Anxiety [Unknown]
  - Hypertension [Not Recovered/Not Resolved]
  - Back pain [Unknown]
  - Arthralgia [Not Recovered/Not Resolved]
  - Bone pain [Not Recovered/Not Resolved]
  - Pelvic pain [Unknown]
  - Intentional drug misuse [Unknown]
  - Gastrooesophageal reflux disease [Unknown]
  - Deafness [Unknown]
  - Hyperlipidaemia [Unknown]
  - Diverticulum [Unknown]
  - Osteoarthritis [Unknown]
  - Vertigo [Unknown]
  - Dizziness [Unknown]
  - Drug ineffective [Unknown]
